FAERS Safety Report 8592218-1 (Version None)
Quarter: 2012Q3

REPORT INFORMATION
  Report Type: 
  Country: None (occurrence: None)
  Receive Date: 20120814
  Receipt Date: 20120806
  Transmission Date: 20120928
  Serious: Yes (Hospitalization)
  Sender: FDA-Public Use
  Company Number: US-US-EMD SERONO, INC.-7053075

PATIENT
  Sex: Female

DRUGS (5)
  1. UNSPECIFIED MEDICATIONS [Concomitant]
     Indication: DIABETES MELLITUS
  2. REBIF [Suspect]
     Indication: MULTIPLE SCLEROSIS
     Route: 058
     Dates: start: 20090409, end: 20111001
  3. UNSPECIFIED MEDICATIONS [Concomitant]
     Indication: BLOOD CHOLESTEROL INCREASED
  4. UNSPECIFIED MEDICATIONS [Concomitant]
     Indication: DEPRESSION
  5. UNSPECIFIED MEDICATIONS [Concomitant]
     Indication: HYPERTENSION

REACTIONS (3)
  - GASTROOESOPHAGEAL REFLUX DISEASE [None]
  - CHILLS [None]
  - PALPITATIONS [None]
